FAERS Safety Report 25357505 (Version 1)
Quarter: 2025Q2

REPORT INFORMATION
  Report Type: Spontaneous
  Country: US (occurrence: US)
  Receive Date: 20250526
  Receipt Date: 20250526
  Transmission Date: 20250717
  Serious: No
  Sender: SANOFI AVENTIS
  Company Number: US-SA-2025SA148292

PATIENT
  Age: 45 Year
  Sex: Female

DRUGS (2)
  1. DUPIXENT [Suspect]
     Active Substance: DUPILUMAB
     Indication: Eczema
     Dosage: 300 MG, QOW
     Route: 058
     Dates: start: 20240730
  2. MOUNJARO [Concomitant]
     Active Substance: TIRZEPATIDE
     Indication: Diabetes mellitus

REACTIONS (5)
  - Skin swelling [Unknown]
  - Pharyngeal swelling [Unknown]
  - Urticaria [Unknown]
  - Hypersensitivity [Unknown]
  - Eczema [Unknown]

NARRATIVE: CASE EVENT DATE: 20250101
